FAERS Safety Report 17638092 (Version 6)
Quarter: 2020Q2

REPORT INFORMATION
  Report Type: Spontaneous
  Country: US (occurrence: US)
  Receive Date: 20200407
  Receipt Date: 20200521
  Transmission Date: 20200713
  Serious: Yes (Other)
  Sender: FDA-Public Use
  Company Number: US-GLAXOSMITHKLINE-US2020AMR058633

PATIENT
  Age: 75 Year
  Sex: Female

DRUGS (3)
  1. ZEJULA [Suspect]
     Active Substance: NIRAPARIB
     Indication: OVARIAN CANCER
     Dosage: 200 MG, DAILY, QPM WITH FOOD
     Route: 048
     Dates: start: 20200323, end: 20200420
  2. ZEJULA [Suspect]
     Active Substance: NIRAPARIB
     Dosage: 100 MG, QD
     Route: 048
  3. IBUPROFEN. [Suspect]
     Active Substance: IBUPROFEN
     Indication: HEADACHE
     Dosage: UNK

REACTIONS (14)
  - Fall [Unknown]
  - Migraine [Unknown]
  - Blood pressure systolic increased [Recovered/Resolved]
  - Oral pain [Unknown]
  - Heart rate increased [Unknown]
  - Off label use [Unknown]
  - Drug ineffective [Unknown]
  - Hypertension [Recovered/Resolved]
  - Head injury [Unknown]
  - Fatigue [Unknown]
  - Constipation [Unknown]
  - Peripheral swelling [Unknown]
  - Syncope [Unknown]
  - Headache [Not Recovered/Not Resolved]

NARRATIVE: CASE EVENT DATE: 20200421
